FAERS Safety Report 12352744 (Version 4)
Quarter: 2016Q2

REPORT INFORMATION
  Report Type: Report from Study
  Country: AU (occurrence: AU)
  Receive Date: 20160510
  Receipt Date: 20160617
  Transmission Date: 20160815
  Serious: Yes (Hospitalization)
  Sender: FDA-Public Use
  Company Number: AU-ABBVIE-16P-008-1625479-00

PATIENT
  Age: 75 Year
  Sex: Female

DRUGS (3)
  1. COLOXYL [Concomitant]
     Active Substance: DOCUSATE SODIUM
  2. DUODOPA [Suspect]
     Active Substance: CARBIDOPA\LEVODOPA
     Indication: PARKINSON^S DISEASE
     Dosage: 16HRLY INFUSION
     Route: 050
     Dates: start: 20160412
  3. COLOXYL [Concomitant]
     Active Substance: DOCUSATE SODIUM
     Indication: PRODUCT USED FOR UNKNOWN INDICATION

REACTIONS (9)
  - Diarrhoea [Unknown]
  - Abdominal pain [Not Recovered/Not Resolved]
  - Stoma site discharge [Unknown]
  - Abdominal pain [Unknown]
  - Diarrhoea [Unknown]
  - Somnolence [Unknown]
  - Fatigue [Recovered/Resolved]
  - Thinking abnormal [Unknown]
  - Sleep disorder [Unknown]

NARRATIVE: CASE EVENT DATE: 20160501
